FAERS Safety Report 8874100 (Version 1)
Quarter: 2012Q4

REPORT INFORMATION
  Report Type: 
  Country: US (occurrence: US)
  Receive Date: 20121023
  Receipt Date: 20121023
  Transmission Date: 20130627
  Serious: Yes (Other)
  Sender: FDA-Public Use
  Company Number: US-TEVA-365605USA

PATIENT
  Age: 44 Year
  Sex: Male

DRUGS (1)
  1. ACTIQ [Suspect]
     Indication: JAW FRACTURE
     Route: 048

REACTIONS (2)
  - Neoplasm malignant [Unknown]
  - Off label use [Unknown]
